FAERS Safety Report 4640450-1 (Version None)
Quarter: 2005Q2

REPORT INFORMATION
  Report Type: 
  Country: None (occurrence: None)
  Receive Date: 20050419
  Receipt Date: 20050406
  Transmission Date: 20051028
  Serious: Yes (Hospitalization, Other)
  Sender: FDA-Public Use
  Company Number: 2005056457

PATIENT
  Age: 58 Year
  Sex: Male
  Weight: 67.7 kg

DRUGS (9)
  1. INSPRA [Suspect]
     Indication: ILL-DEFINED DISORDER
     Dosage: 25 MG (25 MG, ONCE A DAY), ORAL
     Route: 048
     Dates: start: 20041101, end: 20050207
  2. EZETIMIBE/SIMVASTATIN (EZETIMIBE, SIMVASTATIN) [Suspect]
     Indication: DYSLIPIDAEMIA
     Dosage: 10/20 (DAILY), ORAL
     Route: 048
     Dates: end: 20050207
  3. DIGOXIN [Concomitant]
  4. FUROSEMIDE [Concomitant]
  5. LISINOPRIL [Concomitant]
  6. METOPROLOL SUCCINATE [Concomitant]
  7. PANTOPRAZOLE (PANTOPRAZOLE) [Concomitant]
  8. WARFARIN SODIUM [Concomitant]
  9. RISEDRONATE SODIUM (RISEDRONATE SODIUM) [Concomitant]

REACTIONS (7)
  - ABDOMINAL DISCOMFORT [None]
  - CHOLELITHIASIS [None]
  - CHOLESTASIS [None]
  - GALLBLADDER OEDEMA [None]
  - GASTROINTESTINAL MUCOSAL DISORDER [None]
  - HEPATIC ENZYME INCREASED [None]
  - MYOCARDIAL ISCHAEMIA [None]
